FAERS Safety Report 8054847-3 (Version None)
Quarter: 2012Q1

REPORT INFORMATION
  Report Type: 
  Country: None (occurrence: None)
  Receive Date: 20120119
  Receipt Date: 20120112
  Transmission Date: 20120608
  Serious: Yes (Hospitalization)
  Sender: FDA-Public Use
  Company Number: AU-JNJFOC-20111206635

PATIENT
  Sex: Male

DRUGS (4)
  1. OSTEOPOROSIS MEDICINE [Concomitant]
     Indication: OSTEOPOROSIS
     Route: 048
  2. REMICADE [Suspect]
     Indication: CROHN'S DISEASE
     Route: 042
     Dates: start: 20111130
  3. IMURAN [Concomitant]
     Route: 065
  4. REMICADE [Suspect]
     Route: 042
     Dates: start: 20111214

REACTIONS (5)
  - PRURITUS [None]
  - INFUSION RELATED REACTION [None]
  - PAIN IN EXTREMITY [None]
  - MUSCLE TWITCHING [None]
  - ABDOMINAL PAIN [None]
